FAERS Safety Report 13158902 (Version 1)
Quarter: 2017Q1

REPORT INFORMATION
  Report Type: Spontaneous
  Country: US (occurrence: US)
  Receive Date: 20170127
  Receipt Date: 20170127
  Transmission Date: 20170428
  Serious: Yes (Other)
  Sender: FDA-Public Use
  Company Number: US-BAYER-2017-014905

PATIENT
  Sex: Female

DRUGS (1)
  1. MIRENA [Suspect]
     Active Substance: LEVONORGESTREL
     Indication: PRODUCT USED FOR UNKNOWN INDICATION
     Dosage: 20 MCG/24HR, CONT
     Route: 015
     Dates: start: 201608

REACTIONS (5)
  - Device dislocation [Not Recovered/Not Resolved]
  - Off label use [None]
  - Drug ineffective [None]
  - Menstruation irregular [Recovered/Resolved]
  - Pregnancy with contraceptive device [Not Recovered/Not Resolved]
